FAERS Safety Report 19798819 (Version 2)
Quarter: 2022Q1

REPORT INFORMATION
  Report Type: Spontaneous
  Country: US (occurrence: US)
  Receive Date: 20210907
  Receipt Date: 20220303
  Transmission Date: 20220423
  Serious: No
  Sender: FDA-Public Use
  Company Number: US-PFIZER INC-2021727221

PATIENT
  Age: 28 Year
  Sex: Female

DRUGS (4)
  1. IBRANCE [Suspect]
     Active Substance: PALBOCICLIB
     Indication: Breast cancer metastatic
     Dosage: 125 MG, CYCLIC (DAILY 3 WEEKS ON 1 WEEK OFF)
     Dates: start: 201910
  2. LETROZOLE [Suspect]
     Active Substance: LETROZOLE
     Indication: Breast cancer metastatic
     Dosage: UNK
  3. XGEVA [Suspect]
     Active Substance: DENOSUMAB
     Dosage: UNK
  4. ZOLADEX [Suspect]
     Active Substance: GOSERELIN ACETATE
     Dosage: UNK (MONTHLY INJECTION)

REACTIONS (7)
  - Neoplasm progression [Unknown]
  - Panic attack [Unknown]
  - Crying [Unknown]
  - Artificial menopause [Recovered/Resolved]
  - Feeling abnormal [Unknown]
  - Hot flush [Unknown]
  - Illness [Unknown]

NARRATIVE: CASE EVENT DATE: 20191201
